FAERS Safety Report 8178804-1 (Version None)
Quarter: 2012Q1

REPORT INFORMATION
  Report Type: 
  Country: None (occurrence: None)
  Receive Date: 20120301
  Receipt Date: 20120228
  Transmission Date: 20120608
  Serious: Yes (Other)
  Sender: FDA-Public Use
  Company Number: RO-TEVA-320884ISR

PATIENT

DRUGS (5)
  1. CYCLOPHOSPHAMIDE [Suspect]
     Indication: NEPHROPATHY
  2. PREDNISONE TAB [Suspect]
     Indication: NEPHROPATHY
  3. MYCOPHENOLATE MOFETIL [Suspect]
     Indication: NEPHROPATHY
  4. CYCLOSPORINE [Suspect]
     Indication: NEPHROPATHY
  5. METHYLPREDNISOLONE [Suspect]
     Indication: NEPHROPATHY

REACTIONS (5)
  - CUSHING'S SYNDROME [None]
  - SECONDARY HYPERTENSION [None]
  - OBESITY [None]
  - OSTEOPENIA [None]
  - INFECTION [None]
